FAERS Safety Report 5428230-0 (Version None)
Quarter: 2007Q3

REPORT INFORMATION
  Report Type: 
  Country: None (occurrence: None)
  Receive Date: 20070828
  Receipt Date: 20070821
  Transmission Date: 20080115
  Serious: Yes (Other)
  Sender: FDA-Public Use
  Company Number: US-ABBOTT-07P-163-0378816-00

PATIENT
  Age: 26 Month
  Sex: Male
  Weight: 14 kg

DRUGS (7)
  1. SEVOFLURANE [Suspect]
     Indication: ANAESTHESIA
     Dosage: 2.4%
     Route: 055
  2. KETAMINE HCL [Suspect]
     Indication: ANAESTHESIA
     Dosage: TWO DOSES 5 MG, (0.3 MG/KG)
  3. SUCCINYLCHOLINE CHLORIDE [Suspect]
     Indication: ANAESTHESIA
     Dosage: NOT REPORTED
  4. PROPRANOLOL [Concomitant]
     Indication: DRUG USE FOR UNKNOWN INDICATION
     Dosage: NOT REPORTED
  5. MESNA [Concomitant]
     Indication: INCREASED BRONCHIAL SECRETION
     Dosage: NOT REPORTED
  6. AMBROXOL [Concomitant]
     Indication: INCREASED BRONCHIAL SECRETION
     Dosage: NOT REPORTED
  7. RHGAA ERT [Concomitant]
     Indication: GLYCOGEN STORAGE DISEASE TYPE II
     Route: 042

REACTIONS (2)
  - BRADYCARDIA [None]
  - VENTRICULAR TACHYCARDIA [None]
